FAERS Safety Report 8489982-9 (Version None)
Quarter: 2012Q3

REPORT INFORMATION
  Report Type: 
  Country: None (occurrence: None)
  Receive Date: 20120705
  Receipt Date: 20120620
  Transmission Date: 20120928
  Serious: Yes (Other)
  Sender: FDA-Public Use
  Company Number: KP-WATSON-2012-10943

PATIENT
  Age: 34 Year
  Sex: Female

DRUGS (1)
  1. CIMETIDINE [Suspect]
     Indication: ALLERGY TEST
     Dosage: 200 MG, SINGLE
     Route: 048

REACTIONS (3)
  - URTICARIA [None]
  - ANGIOEDEMA [None]
  - HYPERSENSITIVITY [None]
